FAERS Safety Report 6335148-8 (Version None)
Quarter: 2009Q3

REPORT INFORMATION
  Report Type: 
  Country: None (occurrence: None)
  Receive Date: 20090831
  Receipt Date: 20090818
  Transmission Date: 20100115
  Serious: Yes (Death, Life-Threatening, Hospitalization)
  Sender: FDA-Public Use
  Company Number: DE-ALEXION-A200900503

PATIENT
  Sex: Male

DRUGS (11)
  1. SOLIRIS [Suspect]
     Indication: HAEMOLYSIS
     Dosage: 900 MG, QW
     Route: 042
     Dates: start: 20090515
  2. SOLIRIS [Suspect]
     Dosage: 1200 MG, Q2W
     Route: 042
     Dates: start: 20090601
  3. MEROPENEM [Suspect]
     Indication: BACTERAEMIA
     Dosage: 4 X 500 MG, UNK
     Route: 042
     Dates: start: 20090512, end: 20090612
  4. ANTI-CALCINEURIN [Concomitant]
  5. MYCOPHENOLATE MOFETIL [Concomitant]
  6. STEROIDS [Concomitant]
  7. CYCLOSPORINE [Concomitant]
     Indication: STEM CELL TRANSPLANT
     Dosage: 2X50 MG, UNK
     Route: 048
     Dates: start: 20090408
  8. MOVIFLOXACINE [Concomitant]
     Indication: BACTERAEMIA
     Dosage: 400 MG, QD
     Route: 042
     Dates: start: 20090522
  9. COTRIM [Concomitant]
     Indication: BACTERAEMIA
     Dosage: 2 X 960 MG, UNK
     Route: 048
     Dates: start: 20090529
  10. GENTAMICINE                        /00047101/ [Concomitant]
     Indication: BACTERAEMIA
     Dosage: 160 MG, UNK
     Route: 042
     Dates: start: 20090529, end: 20090612
  11. GANCICLOVIR [Concomitant]
     Dosage: 2 X 120 MG, UNK
     Route: 042

REACTIONS (10)
  - ACUTE GRAFT VERSUS HOST DISEASE IN INTESTINE [None]
  - BACTERAEMIA [None]
  - BACTERIAL INFECTION [None]
  - BRONCHOPULMONARY ASPERGILLOSIS [None]
  - C-REACTIVE PROTEIN INCREASED [None]
  - CYTOMEGALOVIRUS INFECTION [None]
  - HAEMATOMA [None]
  - INTRAVASCULAR HAEMOLYSIS [None]
  - MULTI-ORGAN FAILURE [None]
  - RENAL FAILURE ACUTE [None]
